FAERS Safety Report 23747409 (Version 1)
Quarter: 2024Q2

REPORT INFORMATION
  Report Type: Spontaneous
  Country: US (occurrence: None)
  Receive Date: 20240415
  Receipt Date: 20240415
  Transmission Date: 20240716
  Serious: No
  Sender: FDA-Public Use
  Company Number: None

PATIENT
  Age: 41 Year
  Sex: Female
  Weight: 48.15 kg

DRUGS (6)
  1. QULIPTA [Suspect]
     Active Substance: ATOGEPANT
     Indication: Migraine
     Dosage: FREQUENCY : DAILY;?
     Route: 048
     Dates: start: 20231229, end: 20240410
  2. GABAPENTIN [Concomitant]
     Active Substance: GABAPENTIN
  3. oral minoxidil [Concomitant]
  4. Hailey bc [Concomitant]
  5. Vitamin d [Concomitant]
  6. ALOE [Concomitant]
     Active Substance: ALOE

REACTIONS (2)
  - Bladder irritation [None]
  - Cystitis interstitial [None]

NARRATIVE: CASE EVENT DATE: 20240410
